FAERS Safety Report 21226962 (Version 1)
Quarter: 2022Q3

REPORT INFORMATION
  Report Type: Report from Study
  Country: US (occurrence: US)
  Receive Date: 20220818
  Receipt Date: 20220818
  Transmission Date: 20221027
  Serious: Yes (Other)
  Sender: FDA-Public Use
  Company Number: US-BRISTOL-MYERS SQUIBB COMPANY-2022-087205

PATIENT
  Age: 42 Year
  Sex: Male

DRUGS (1)
  1. ZEPOSIA [Suspect]
     Active Substance: OZANIMOD HYDROCHLORIDE
     Indication: Colitis ulcerative
     Route: 048
     Dates: start: 20220718

REACTIONS (6)
  - Rectal haemorrhage [Unknown]
  - Fatigue [Unknown]
  - Muscular weakness [Unknown]
  - Headache [Unknown]
  - Abdominal pain [Unknown]
  - Gastrointestinal inflammation [Unknown]
